FAERS Safety Report 5225659-0 (Version None)
Quarter: 2007Q1

REPORT INFORMATION
  Report Type: 
  Country: None (occurrence: None)
  Receive Date: 20061201
  Receipt Date: 20060822
  Transmission Date: 20070707
  Serious: No
  Sender: FDA-Public Use
  Company Number: US200603000395

PATIENT
  Age: 53 Year
  Sex: Male

DRUGS (10)
  1. CYMBALTA [Suspect]
     Indication: DEPRESSION
     Dosage: 20 MG, EACH MORNING
     Dates: start: 20050316, end: 20050322
  2. TAGAMET [Concomitant]
  3. LEVSIN (HYOSCYAMINE SULFATE) [Concomitant]
  4. PHENERGAN (PROMETHAZINE HYDROCHLORIDE) [Concomitant]
  5. METOPROLOL TARTRATE [Concomitant]
  6. PAXIL [Concomitant]
  7. DIAZEPAM [Concomitant]
  8. DOXEPIN HCL [Concomitant]
  9. TESTOSTERONE CIPIONATE (TESTOSTERONE CIPIONATE) [Concomitant]
  10. DIMETAPP (BROMPHENIRAMINE MALEATE, PHENYLEPHRINE HYDROCHLORIDE, PHENYL [Concomitant]

REACTIONS (3)
  - CHEST PAIN [None]
  - DYSPNOEA [None]
  - MUSCLE SPASMS [None]
